FAERS Safety Report 19296557 (Version 1)
Quarter: 2021Q2

REPORT INFORMATION
  Report Type: Spontaneous
  Country: CA (occurrence: CA)
  Receive Date: 20210524
  Receipt Date: 20210524
  Transmission Date: 20210717
  Serious: Yes (Hospitalization, Disabling, Other)
  Sender: FDA-Public Use
  Company Number: CA-ALLERGAN-2119706US

PATIENT
  Sex: Female

DRUGS (5)
  1. LIPITOR [Concomitant]
     Active Substance: ATORVASTATIN CALCIUM
     Route: 065
  2. OMEGA?3 FATTY ACIDS [Concomitant]
     Active Substance: OMEGA-3 FATTY ACIDS
  3. VITAMIN D NOS [Concomitant]
     Active Substance: VITAMIN D NOS
  4. ACTONEL [Suspect]
     Active Substance: RISEDRONATE SODIUM
     Indication: BONE DENSITY ABNORMAL
     Dosage: 35 MG
     Route: 048
  5. CALCIUM [Concomitant]
     Active Substance: CALCIUM

REACTIONS (2)
  - Fracture [Unknown]
  - Gait inability [Unknown]
